FAERS Safety Report 4983892-7 (Version None)
Quarter: 2006Q2

REPORT INFORMATION
  Report Type: 
  Country: None (occurrence: None)
  Receive Date: 20060426
  Receipt Date: 20050718
  Transmission Date: 20061013
  Serious: Yes (Disabling, Other)
  Sender: FDA-Public Use
  Company Number: US-MERCK-0507USA02803

PATIENT
  Age: 52 Year
  Sex: Female
  Weight: 89 kg

DRUGS (2)
  1. VIOXX [Suspect]
     Indication: SYSTEMIC LUPUS ERYTHEMATOSUS
     Route: 048
     Dates: start: 19990101, end: 20040801
  2. VIOXX [Suspect]
     Indication: DERMATOMYOSITIS
     Route: 048
     Dates: start: 19990101, end: 20040801

REACTIONS (9)
  - GASTROOESOPHAGEAL REFLUX DISEASE [None]
  - GENERAL SYMPTOM [None]
  - INJURY [None]
  - INTERSTITIAL LUNG DISEASE [None]
  - JOINT INJURY [None]
  - MITRAL VALVE PROLAPSE [None]
  - MYOCARDIAL INFARCTION [None]
  - PULMONARY FIBROSIS [None]
  - TRANSIENT ISCHAEMIC ATTACK [None]
